FAERS Safety Report 4620347-3 (Version None)
Quarter: 2005Q1

REPORT INFORMATION
  Report Type: 
  Country: None (occurrence: None)
  Receive Date: 20050324
  Receipt Date: 20050314
  Transmission Date: 20050727
  Serious: Yes (Disabling)
  Sender: FDA-Public Use
  Company Number: HQWYE103814MAR05

PATIENT
  Age: 29 Year
  Sex: Female

DRUGS (3)
  1. EFFEXOR XR [Suspect]
     Dosage: SEE IMAGE
     Dates: start: 20011101, end: 20011101
  2. EFFEXOR XR [Suspect]
     Dosage: SEE IMAGE
     Dates: end: 20041001
  3. EFFEXOR XR [Suspect]
     Dosage: SEE IMAGE
     Dates: start: 20041001

REACTIONS (5)
  - DIZZINESS [None]
  - DRUG ABUSER [None]
  - DRUG WITHDRAWAL SYNDROME [None]
  - FEELING ABNORMAL [None]
  - SOCIAL PHOBIA [None]
